FAERS Safety Report 13625556 (Version 3)
Quarter: 2017Q2

REPORT INFORMATION
  Report Type: Spontaneous
  Country: JP (occurrence: JP)
  Receive Date: 20170608
  Receipt Date: 20170629
  Transmission Date: 20170830
  Serious: Yes (Death, Hospitalization)
  Sender: FDA-Public Use
  Company Number: JP-B.I. PHARMACEUTICALS,INC./RIDGEFIELD-2017-NB-003049

PATIENT
  Age: 83 Year
  Sex: Male

DRUGS (1)
  1. PRAZAXA [Suspect]
     Active Substance: DABIGATRAN ETEXILATE MESYLATE
     Indication: PRODUCT USED FOR UNKNOWN INDICATION
     Route: 048
     Dates: end: 20170525

REACTIONS (3)
  - Brain compression [Fatal]
  - Cerebellar haemorrhage [Fatal]
  - Haemorrhage intracranial [Recovered/Resolved]

NARRATIVE: CASE EVENT DATE: 20170526
